FAERS Safety Report 9454603 (Version 1)
Quarter: 2013Q3

REPORT INFORMATION
  Report Type: Spontaneous
  Country: US (occurrence: None)
  Receive Date: 20130808
  Receipt Date: 20130808
  Transmission Date: 20140515
  Serious: Yes (Hospitalization)
  Sender: FDA-Public Use
  Company Number: SYM-2013-07711

PATIENT
  Age: 72 Year
  Sex: Female

DRUGS (6)
  1. FLUOROURACIL (FLUOROURACIL) (FLUOROURACIL) [Suspect]
     Indication: PANCREATIC CARCINOMA
  2. OXALIPLATIN (OXALIPLATIN) (OXALIPLATIN) [Suspect]
     Indication: PANCREATIC CARCINOMA
  3. FOLINIC ACID [Suspect]
     Indication: PANCREATIC CARCINOMA
  4. IRINOTECAN [Suspect]
     Indication: PANCREATIC CARCINOMA
  5. G-CSF (GRANULOCYTE COLONY STIMULATING FACTOR) [Concomitant]
  6. ACYCLOVIR (ACICLOVIR) (ACICLOVIR) [Concomitant]

REACTIONS (5)
  - Bone marrow failure [None]
  - Diarrhoea [None]
  - Nausea [None]
  - Vomiting [None]
  - Peripheral sensory neuropathy [None]
